FAERS Safety Report 23658731 (Version 1)
Quarter: 2024Q1

REPORT INFORMATION
  Report Type: Spontaneous
  Country: US (occurrence: US)
  Receive Date: 20240321
  Receipt Date: 20240321
  Transmission Date: 20240409
  Serious: Yes (Other)
  Sender: FDA-Public Use
  Company Number: US-PFIZER INC-202400062480

PATIENT

DRUGS (4)
  1. LOSARTAN POTASSIUM [Suspect]
     Active Substance: LOSARTAN POTASSIUM
     Dosage: 100
     Route: 048
  2. LOSARTAN POTASSIUM [Suspect]
     Active Substance: LOSARTAN POTASSIUM
     Dosage: 50
     Route: 048
  3. BOSULIF [Suspect]
     Active Substance: BOSUTINIB MONOHYDRATE
     Dosage: 100 MILLIGRAM, QD
     Route: 048
     Dates: start: 202002
  4. SPRYCEL [Suspect]
     Active Substance: DASATINIB
     Dosage: UNK
     Route: 065

REACTIONS (2)
  - Pleural effusion [Not Recovered/Not Resolved]
  - Glomerular filtration rate increased [Not Recovered/Not Resolved]

NARRATIVE: CASE EVENT DATE: 20230901
